FAERS Safety Report 7382849-9 (Version None)
Quarter: 2011Q1

REPORT INFORMATION
  Report Type: 
  Country: None (occurrence: None)
  Receive Date: 20110329
  Receipt Date: 20110329
  Transmission Date: 20110831
  Serious: No
  Sender: FDA-Public Use
  Company Number: None

PATIENT
  Age: 8 Year
  Sex: Female
  Weight: 29.0302 kg

DRUGS (1)
  1. ALCOHOL PREP PAD [Suspect]

REACTIONS (2)
  - APPLICATION SITE ERYTHEMA [None]
  - SCAB [None]
